FAERS Safety Report 6999396-6 (Version None)
Quarter: 2010Q3

REPORT INFORMATION
  Report Type: 
  Country: None (occurrence: None)
  Receive Date: 20100920
  Receipt Date: 20100318
  Transmission Date: 20110219
  Serious: Yes (Hospitalization)
  Sender: FDA-Public Use
  Company Number: US-ASTRAZENECA-2010SE11911

PATIENT
  Age: 84 Year
  Sex: Male
  Weight: 83.9 kg

DRUGS (4)
  1. SEROQUEL [Suspect]
     Indication: MOOD ALTERED
     Route: 048
     Dates: start: 20090101
  2. DEPAKOTE [Concomitant]
  3. NEURONTIN [Concomitant]
  4. MIRTAZAPIN [Concomitant]

REACTIONS (2)
  - BLISTER [None]
  - CONVULSION [None]
